FAERS Safety Report 14131006 (Version 2)
Quarter: 2018Q1

REPORT INFORMATION
  Report Type: Spontaneous
  Country: FR (occurrence: FR)
  Receive Date: 20171026
  Receipt Date: 20180213
  Transmission Date: 20180508
  Serious: Yes (Hospitalization, Other)
  Sender: FDA-Public Use
  Company Number: FR-GILEAD-2017-0300947

PATIENT
  Age: 46 Year
  Sex: Male
  Weight: 78 kg

DRUGS (9)
  1. EFFERALGAN [Concomitant]
     Active Substance: ACETAMINOPHEN
  2. SERETIDE [Concomitant]
     Active Substance: FLUTICASONE PROPIONATE\SALMETEROL XINAFOATE
  3. AIROMIR                            /00139501/ [Concomitant]
     Active Substance: ALBUTEROL
  4. GAVISCON [Concomitant]
     Active Substance: ALUMINUM HYDROXIDE\MAGNESIUM CARBONATE
  5. GENVOYA [Suspect]
     Active Substance: COBICISTAT\ELVITEGRAVIR\EMTRICITABINE\TENOFOVIR ALAFENAMIDE FUMARATE
     Indication: HIV INFECTION
     Dosage: 1 DF, QD
     Route: 048
     Dates: start: 20170320
  6. UVEDOSE [Concomitant]
     Active Substance: CHOLECALCIFEROL
  7. IMOVANE [Concomitant]
     Active Substance: ZOPICLONE
  8. INEXIUM                            /01479302/ [Concomitant]
     Active Substance: ESOMEPRAZOLE MAGNESIUM
  9. FLECAINE [Concomitant]
     Active Substance: FLECAINIDE

REACTIONS (1)
  - Osteonecrosis [Not Recovered/Not Resolved]

NARRATIVE: CASE EVENT DATE: 201706
